FAERS Safety Report 18785149 (Version 1)
Quarter: 2021Q1

REPORT INFORMATION
  Report Type: Spontaneous
  Country: US (occurrence: US)
  Receive Date: 20210125
  Receipt Date: 20210125
  Transmission Date: 20210419
  Serious: No
  Sender: FDA-Public Use
  Company Number: US-LUPIN PHARMACEUTICALS INC.-2021-00579

PATIENT
  Age: 31 Year
  Sex: Male

DRUGS (4)
  1. HALOPERIDOL. [Suspect]
     Active Substance: HALOPERIDOL
     Indication: CHOREA
     Dosage: UNK (ADMINISTERED IN ESCALATING DOSES)
     Route: 065
  2. TETRABENAZINE. [Suspect]
     Active Substance: TETRABENAZINE
     Indication: CHOREA
     Dosage: UNK (ADMINISTERED IN ESCALATING DOSES)
     Route: 065
  3. TETRABENAZINE. [Suspect]
     Active Substance: TETRABENAZINE
     Indication: BALLISMUS
  4. HALOPERIDOL. [Suspect]
     Active Substance: HALOPERIDOL
     Indication: BALLISMUS

REACTIONS (3)
  - Sedation [Unknown]
  - Mental status changes [Unknown]
  - Diarrhoea [Unknown]
